FAERS Safety Report 14502812 (Version 3)
Quarter: 2018Q1

REPORT INFORMATION
  Report Type: Spontaneous
  Country: US (occurrence: US)
  Receive Date: 20180208
  Receipt Date: 20180321
  Transmission Date: 20180509
  Serious: Yes (Other)
  Sender: FDA-Public Use
  Company Number: US-BIOGEN-2018BI00520438

PATIENT
  Age: 41 Year
  Sex: Female

DRUGS (3)
  1. TECFIDERA [Interacting]
     Active Substance: DIMETHYL FUMARATE
     Route: 065
     Dates: end: 20170628
  2. TECFIDERA [Suspect]
     Active Substance: DIMETHYL FUMARATE
     Indication: MULTIPLE SCLEROSIS
     Dosage: STARTING DOSE
     Route: 048
  3. TECFIDERA [Interacting]
     Active Substance: DIMETHYL FUMARATE
     Dosage: MAINTENANCE DOSE
     Route: 048
     Dates: start: 20170824

REACTIONS (1)
  - Hepatitis B [Recovered/Resolved]

NARRATIVE: CASE EVENT DATE: 20180117
